FAERS Safety Report 18032696 (Version 4)
Quarter: 2020Q4

REPORT INFORMATION
  Report Type: Report from Study
  Country: GB (occurrence: GB)
  Receive Date: 20200716
  Receipt Date: 20201009
  Transmission Date: 20210113
  Serious: Yes (Hospitalization, Other)
  Sender: FDA-Public Use
  Company Number: GB-IPSEN BIOPHARMACEUTICALS, INC.-2020-12232

PATIENT
  Sex: Male

DRUGS (1)
  1. SOMATULINE AUTOGEL [Suspect]
     Active Substance: LANREOTIDE ACETATE
     Indication: NEUROENDOCRINE TUMOUR
     Dosage: 120MG/0.5 ML
     Route: 058

REACTIONS (4)
  - Stoma closure [Unknown]
  - Head injury [Unknown]
  - Syncope [Recovered/Resolved]
  - Tumour excision [Unknown]
